FAERS Safety Report 9508123 (Version 1)
Quarter: 2013Q1

REPORT INFORMATION
  Report Type: Spontaneous
  Country: US (occurrence: None)
  Receive Date: 20130305
  Receipt Date: 20130305
  Transmission Date: 20140127
  Serious: Yes (Other)
  Sender: FDA-Public Use
  Company Number: 163-21880-12082608

PATIENT
  Age: 74 Year
  Sex: Female
  Weight: 67.9 kg

DRUGS (4)
  1. REVLIMID (LENALIDOMIDE) (CAPSULES) [Suspect]
     Indication: MYELOFIBROSIS
     Dosage: CAPSULE, 5 MG, 21 IN 21 D, PO
     Dates: start: 20120409, end: 20120705
  2. SPIRONOLACTONE [Concomitant]
  3. DEXAMETHASONE [Concomitant]
  4. POTASSIUM [Concomitant]

REACTIONS (1)
  - Thrombocytopenia [None]
